FAERS Safety Report 14837143 (Version 1)
Quarter: 2018Q2

REPORT INFORMATION
  Report Type: Spontaneous
  Country: JP (occurrence: JP)
  Receive Date: 20180502
  Receipt Date: 20180502
  Transmission Date: 20180711
  Serious: Yes (Hospitalization)
  Sender: FDA-Public Use
  Company Number: JP-JNJFOC-20180436611

PATIENT
  Age: 73 Year
  Sex: Male

DRUGS (7)
  1. LEUPLIN [Concomitant]
     Active Substance: LEUPROLIDE ACETATE
     Route: 065
  2. WARFARIN [Concomitant]
     Active Substance: WARFARIN
     Route: 048
  3. RANMARK [Concomitant]
     Active Substance: DENOSUMAB
     Route: 065
  4. CARVEDILOL. [Concomitant]
     Active Substance: CARVEDILOL
     Route: 048
  5. ZYTIGA [Suspect]
     Active Substance: ABIRATERONE ACETATE
     Indication: HORMONE-REFRACTORY PROSTATE CANCER
     Route: 048
     Dates: start: 20170727, end: 20170906
  6. CANDESARTAN. [Concomitant]
     Active Substance: CANDESARTAN
     Route: 048
  7. ZYTIGA [Suspect]
     Active Substance: ABIRATERONE ACETATE
     Indication: HORMONE-REFRACTORY PROSTATE CANCER
     Route: 048
     Dates: start: 20170907, end: 20171116

REACTIONS (2)
  - Dehydration [Unknown]
  - Decreased appetite [Unknown]

NARRATIVE: CASE EVENT DATE: 20180206
